FAERS Safety Report 24638902 (Version 1)
Quarter: 2024Q4

REPORT INFORMATION
  Report Type: Spontaneous
  Country: US (occurrence: US)
  Receive Date: 20241119
  Receipt Date: 20241119
  Transmission Date: 20250114
  Serious: No
  Sender: SANOFI AVENTIS
  Company Number: US-SA-2024SA332054

PATIENT
  Age: 47 Year

DRUGS (1)
  1. LOVENOX [Suspect]
     Active Substance: ENOXAPARIN SODIUM
     Indication: Colon cancer
     Dosage: 120 MG, BID (PRE-FILLED PEN)
     Route: 058

REACTIONS (1)
  - Off label use [Unknown]
